FAERS Safety Report 8389736 (Version 3)
Quarter: 2012Q4

REPORT INFORMATION
  Report Type: Report from Study
  Country: DE (occurrence: DE)
  Receive Date: 20120203
  Receipt Date: 20120911
  Transmission Date: 20130627
  Serious: Yes (Hospitalization)
  Sender: FDA-Public Use
  Company Number: DE-GLAXOSMITHKLINE-B0665491A

PATIENT
  Age: 55 Year
  Sex: Female
  Weight: 58 kg

DRUGS (5)
  1. LAPATINIB [Suspect]
     Indication: BREAST CANCER
     Dosage: 1500MG Per day
     Route: 048
     Dates: start: 20090423
  2. PACLITAXEL [Suspect]
     Indication: BREAST CANCER
     Dosage: 80MGM2 Weekly
     Route: 042
     Dates: start: 20090608
  3. FLUOROURACIL [Concomitant]
     Route: 042
     Dates: start: 20091028
  4. EPIRUBICIN [Concomitant]
     Route: 042
     Dates: start: 20091028
  5. CYCLOPHOSPHAMIDE [Concomitant]
     Route: 042
     Dates: start: 20091028

REACTIONS (1)
  - Neutropenia [Recovered/Resolved]
